FAERS Safety Report 13110199 (Version 1)
Quarter: 2017Q1

REPORT INFORMATION
  Report Type: Spontaneous
  Country: US (occurrence: US)
  Receive Date: 20170112
  Receipt Date: 20170112
  Transmission Date: 20170428
  Serious: Yes (Other)
  Sender: FDA-Public Use
  Company Number: US-ROCHE-GNE295859

PATIENT
  Age: 61 Year
  Sex: Female

DRUGS (2)
  1. ACTIVASE [Suspect]
     Active Substance: ALTEPLASE
     Indication: THROMBOSIS
     Dosage: 1 MG, SINGLE
     Route: 050
     Dates: start: 20091208
  2. ACTIVASE [Suspect]
     Active Substance: ALTEPLASE
     Dosage: 1.5 MG, SINGLE
     Route: 050
     Dates: start: 20091209

REACTIONS (1)
  - Drug ineffective [Unknown]

NARRATIVE: CASE EVENT DATE: 20091209
